FAERS Safety Report 9073314 (Version 1)
Quarter: 2013Q1

REPORT INFORMATION
  Report Type: Report from Study
  Country: US (occurrence: US)
  Receive Date: 20130129
  Receipt Date: 20130129
  Transmission Date: 20140127
  Serious: No
  Sender: FDA-Public Use
  Company Number: US-ABBOTT-12P-163-0914272-00

PATIENT
  Age: 65 Year
  Sex: Female

DRUGS (13)
  1. HUMIRA 40 MG/0.8 ML PEN [Suspect]
     Indication: CROHN^S DISEASE
     Dates: start: 20111207
  2. TENORMIN GENERIC [Concomitant]
     Indication: HYPERTENSION
     Dosage: AT BEDTIME
  3. NEURONTIN GENERIC [Concomitant]
     Indication: MIGRAINE
  4. PRILOSEC OVER THE COUNTER [Concomitant]
     Indication: GASTROOESOPHAGEAL REFLUX DISEASE
  5. CARAFATE [Concomitant]
     Indication: GASTROOESOPHAGEAL REFLUX DISEASE
  6. OMEGA 3 [Concomitant]
     Indication: SUPPLEMENTATION THERAPY
     Dosage: ONE DAILY
  7. VITAMIN C [Concomitant]
     Indication: VITAMIN SUPPLEMENTATION
     Dosage: 1000 MG DAILY
  8. MULTIVITAMIN [Concomitant]
     Indication: PRODUCT USED FOR UNKNOWN INDICATION
     Dosage: ONE DAILY
  9. VITAMIN E [Concomitant]
     Indication: PRODUCT USED FOR UNKNOWN INDICATION
  10. CALCIUM +D3 [Concomitant]
     Indication: MINERAL SUPPLEMENTATION
     Dosage: TWO DAILY
  11. BABY ASPIRIN [Concomitant]
     Indication: PROPHYLAXIS
  12. CRANBERRY [Concomitant]
     Indication: PROPHYLAXIS
  13. CRANBERRY [Concomitant]
     Indication: URINARY TRACT INFECTION

REACTIONS (9)
  - Oropharyngeal pain [Not Recovered/Not Resolved]
  - Rash pruritic [Recovered/Resolved]
  - Rash pruritic [Recovered/Resolved]
  - Rash pruritic [Recovered/Resolved]
  - Burning sensation [Recovered/Resolved]
  - Burning sensation [Recovered/Resolved]
  - Burning sensation [Recovered/Resolved]
  - Dry skin [Not Recovered/Not Resolved]
  - Skin exfoliation [Not Recovered/Not Resolved]
